FAERS Safety Report 24694510 (Version 1)
Quarter: 2024Q4

REPORT INFORMATION
  Report Type: Spontaneous
  Country: GB (occurrence: GB)
  Receive Date: 20241204
  Receipt Date: 20241204
  Transmission Date: 20250114
  Serious: Yes (Other)
  Sender: SANDOZ
  Company Number: None

PATIENT
  Age: 67 Year
  Sex: Female
  Weight: 99 kg

DRUGS (5)
  1. FLUCLOXACILLIN SODIUM [Suspect]
     Active Substance: FLUCLOXACILLIN SODIUM
     Indication: Nail infection
     Dosage: 500 MG
     Route: 065
     Dates: end: 20241123
  2. OMEPRAZOLE [Suspect]
     Active Substance: OMEPRAZOLE
     Indication: Gastrooesophageal reflux disease
     Dosage: UNK
     Route: 065
     Dates: start: 20100101
  3. ATORVASTATIN [Concomitant]
     Active Substance: ATORVASTATIN
     Indication: Product used for unknown indication
     Dosage: UNK
     Route: 065
  4. BENDROFLUMETHIAZIDE [Concomitant]
     Active Substance: BENDROFLUMETHIAZIDE
     Indication: Product used for unknown indication
     Dosage: UNK
     Route: 065
  5. IRBESARTAN [Concomitant]
     Active Substance: IRBESARTAN
     Indication: Product used for unknown indication
     Dosage: UNK
     Route: 065

REACTIONS (4)
  - Dyspepsia [Unknown]
  - Gastritis [Unknown]
  - Drug interaction [Unknown]
  - Nausea [Unknown]

NARRATIVE: CASE EVENT DATE: 20241122
